FAERS Safety Report 21578628 (Version 3)
Quarter: 2022Q4

REPORT INFORMATION
  Report Type: Spontaneous
  Country: US (occurrence: US)
  Receive Date: 20221110
  Receipt Date: 20221121
  Transmission Date: 20230113
  Serious: No
  Sender: FDA-Public Use
  Company Number: US-PFIZER INC-PV202200100382

PATIENT
  Age: 64 Year
  Sex: Male

DRUGS (3)
  1. CIBINQO [Interacting]
     Active Substance: ABROCITINIB
     Dosage: 100 MG
     Route: 048
  2. CIBINQO [Interacting]
     Active Substance: ABROCITINIB
     Dosage: 50 MG
     Route: 048
  3. PLAVIX [Interacting]
     Active Substance: CLOPIDOGREL BISULFATE
     Dosage: UNK

REACTIONS (1)
  - Drug interaction [Unknown]
